FAERS Safety Report 18676673 (Version 1)
Quarter: 2020Q4

REPORT INFORMATION
  Report Type: Spontaneous
  Country: GB (occurrence: GB)
  Receive Date: 20201229
  Receipt Date: 20201229
  Transmission Date: 20210114
  Serious: Yes (Other)
  Sender: FDA-Public Use
  Company Number: GB-PFIZER INC-2020506930

PATIENT
  Age: 44 Year
  Sex: Male
  Weight: 102 kg

DRUGS (10)
  1. SOLPADOL [CODEINE PHOSPHATE;PARACETAMOL] [Concomitant]
     Dosage: 8 DF, DAILY AS REQUIRED
     Dates: start: 20201118
  2. RAMIPRIL. [Concomitant]
     Active Substance: RAMIPRIL
     Dosage: 1 DF, DAILY
     Dates: start: 20200203
  3. HYDROXOCOBALAMIN [Concomitant]
     Active Substance: HYDROXOCOBALAMIN
     Dosage: INITIALLY 1MG TO BE ADMINISTERED THREE TIMES A.
     Dates: start: 20200702
  4. GABAPENTIN. [Suspect]
     Active Substance: GABAPENTIN
     Dosage: 6 DF, DAILY
     Dates: start: 20200820
  5. LERCANIDIPINE HYDROCHLORIDE [Concomitant]
     Active Substance: LERCANIDIPINE HYDROCHLORIDE
     Dosage: 1 DF, DAILY
     Dates: start: 20201208
  6. ATORVASTATIN [Concomitant]
     Active Substance: ATORVASTATIN
     Dosage: 1 DF, DAILY EVERY EVENING
     Dates: start: 20200203
  7. PREGABALIN. [Concomitant]
     Active Substance: PREGABALIN
     Dosage: 2 DF, DAILY
     Dates: start: 20201203
  8. NAPROXEN. [Concomitant]
     Active Substance: NAPROXEN
     Dosage: 2 DF, DAILY
     Dates: start: 20200820
  9. AMLODIPINE [Concomitant]
     Active Substance: AMLODIPINE BESYLATE
     Dosage: 1 DF, DAILY EVERY MORNING
     Dates: start: 20200128, end: 20201208
  10. AMITRIPTYLINE HYDROCHLORIDE. [Concomitant]
     Active Substance: AMITRIPTYLINE HYDROCHLORIDE
     Dosage: 1 DF, DAILYAT NIGHT
     Dates: start: 20200828

REACTIONS (3)
  - Joint swelling [Recovered/Resolved]
  - Pain in extremity [Unknown]
  - Peripheral swelling [Unknown]

NARRATIVE: CASE EVENT DATE: 20201203
